FAERS Safety Report 20693592 (Version 1)
Quarter: 2022Q2

REPORT INFORMATION
  Report Type: Spontaneous
  Country: GB (occurrence: GB)
  Receive Date: 20220411
  Receipt Date: 20220411
  Transmission Date: 20220721
  Serious: Yes (Other)
  Sender: FDA-Public Use
  Company Number: GB-MHRA-TPP36018605C8330978YC1648114111161

PATIENT
  Age: 39 Year
  Sex: Female
  Weight: 76 kg

DRUGS (4)
  1. AMOXICILLIN [Suspect]
     Active Substance: AMOXICILLIN
     Indication: Product used for unknown indication
     Dosage: 500 MILLIGRAM (ONE CAPSULE TO BE TAKEN THREE TIMES A DAY FOR 7)
     Route: 065
     Dates: start: 20220321
  2. AMLODIPINE [Concomitant]
     Active Substance: AMLODIPINE BESYLATE
     Indication: Product used for unknown indication
     Dosage: 1 DOSAGE FORM, ONCE A DAY(ONE TABLET TO BE TAKEN ONCE A DAY IN THE MORNIN)
     Route: 065
     Dates: start: 20211202
  3. FERROUS FUMARATE [Concomitant]
     Active Substance: FERROUS FUMARATE
     Indication: Product used for unknown indication
     Dosage: 1 DOSAGE FORM, 3 TIMES A DAY(ONE TO BE TAKEN THREE TIMES DAILY)
     Route: 065
     Dates: start: 20220311
  4. FEXOFENADINE [Concomitant]
     Active Substance: FEXOFENADINE HYDROCHLORIDE
     Indication: Product used for unknown indication
     Dosage: 1 DOSAGE FORM, ONCE A DAY(ONE TABLET TO BE TAKEN ONCE A DAY)
     Route: 065
     Dates: start: 20220324

REACTIONS (1)
  - Pruritus [Recovering/Resolving]

NARRATIVE: CASE EVENT DATE: 20220324
